FAERS Safety Report 8519313-7 (Version None)
Quarter: 2012Q3

REPORT INFORMATION
  Report Type: 
  Country: None (occurrence: None)
  Receive Date: 20120718
  Receipt Date: 20120713
  Transmission Date: 20120928
  Serious: Yes (Other)
  Sender: FDA-Public Use
  Company Number: CA-ROCHE-1088039

PATIENT
  Sex: Male
  Weight: 81.72 kg

DRUGS (15)
  1. DOCUSATE SODIUM [Concomitant]
  2. VEMURAFENIB [Suspect]
     Indication: METASTATIC MALIGNANT MELANOMA
     Route: 048
     Dates: start: 20120301, end: 20120710
  3. INSULIN [Concomitant]
  4. PREDNISONE TAB [Concomitant]
  5. SYNTHROID [Concomitant]
  6. DIDROCAL [Concomitant]
  7. AVAPRO [Concomitant]
  8. OXYCODONE HCL [Concomitant]
  9. HYDROCHLOROTHIAZIDE [Concomitant]
  10. ATORVASTATIN [Concomitant]
  11. PANTOPRAZOLE [Concomitant]
  12. ADALAT [Concomitant]
  13. ASPIRIN [Concomitant]
  14. TAMSULOSIN HCL [Concomitant]
  15. OXYCONTIN [Concomitant]

REACTIONS (2)
  - DISEASE PROGRESSION [None]
  - DRUG INEFFECTIVE [None]
